FAERS Safety Report 9553591 (Version 1)
Quarter: 2013Q3

REPORT INFORMATION
  Report Type: Spontaneous
  Country: US (occurrence: US)
  Receive Date: 20130925
  Receipt Date: 20130925
  Transmission Date: 20140515
  Serious: Yes (Other)
  Sender: FDA-Public Use
  Company Number: US-PFIZER INC-2013270697

PATIENT
  Age: 79 Year
  Sex: Female

DRUGS (17)
  1. ATORVASTATIN CALCIUM [Suspect]
     Dosage: 40 MG, 1X/DAY
  2. PROTONIX [Suspect]
     Dosage: 40 MG, 1X/DAY
     Route: 048
  3. LYRICA [Suspect]
     Dosage: STRENGTH 150 MG, ONE TABLET IN THE MORNIANG AND TWO TABLETS IN THE AFTERNOON
     Route: 048
  4. SULFASALAZINE [Suspect]
     Dosage: 1500 MG, 2X/DAY
  5. POTASSIUM CHLORIDE [Suspect]
     Dosage: UNK, 2X/DAY
  6. PANTOPRAZOLE [Suspect]
     Dosage: 40 MG, 1X/DAY
  7. FUROSEMIDE [Suspect]
     Dosage: 40 MG, 1X/DAY
  8. PREDNISONE [Suspect]
     Dosage: 5 MG, 1X/DAY
  9. SPIRIVA [Suspect]
     Dosage: 18 UG, 1X/DAY
  10. PRADAXA [Suspect]
     Dosage: 150 MG, 2X/DAY
  11. METOPROLOL SUCCINATE [Suspect]
     Dosage: 50 MG, 1X/DAY
  12. ENALAPRIL MALEATE [Suspect]
     Dosage: 2.5 MG, 2X/DAY
  13. DIGOXIN [Suspect]
     Dosage: 125 UG, 1X/DAY
  14. ALLOPURINOL [Suspect]
     Dosage: 100 MG, 2X/DAY
  15. ADVAIR [Suspect]
     Dosage: 100/50, 2X/DAY
  16. LEVEMIR [Suspect]
     Dosage: UNK
  17. NOVOLOG [Suspect]
     Dosage: UNK

REACTIONS (1)
  - Lung neoplasm malignant [Unknown]
